FAERS Safety Report 17761815 (Version 1)
Quarter: 2020Q2

REPORT INFORMATION
  Report Type: Spontaneous
  Country: CA (occurrence: CA)
  Receive Date: 20200508
  Receipt Date: 20200508
  Transmission Date: 20200714
  Serious: Yes (Other)
  Sender: FDA-Public Use
  Company Number: CA-ROCHE-2593465

PATIENT
  Age: 65 Year
  Sex: Female
  Weight: 79 kg

DRUGS (16)
  1. FLOVENT [Concomitant]
     Active Substance: FLUTICASONE PROPIONATE
  2. FOLIC ACID. [Concomitant]
     Active Substance: FOLIC ACID
  3. PANTOPRAZOLE [Concomitant]
     Active Substance: PANTOPRAZOLE
  4. ORENCIA [Suspect]
     Active Substance: ABATACEPT
     Indication: PRODUCT USED FOR UNKNOWN INDICATION
     Route: 042
  5. ACTEMRA [Suspect]
     Active Substance: TOCILIZUMAB
     Indication: PRODUCT USED FOR UNKNOWN INDICATION
     Route: 042
  6. HUMIRA [Suspect]
     Active Substance: ADALIMUMAB
     Indication: PRODUCT USED FOR UNKNOWN INDICATION
     Route: 058
  7. ASA [Concomitant]
     Active Substance: ASPIRIN
     Route: 002
  8. BENZYDAMINE [Concomitant]
     Active Substance: BENZYDAMINE
     Route: 002
  9. RAMIPRIL. [Concomitant]
     Active Substance: RAMIPRIL
  10. ROSUVASTATIN CALCIUM. [Concomitant]
     Active Substance: ROSUVASTATIN CALCIUM
  11. SALBUTAMOL [Concomitant]
     Active Substance: ALBUTEROL
  12. ACTEMRA [Suspect]
     Active Substance: TOCILIZUMAB
     Route: 042
  13. ENBREL [Suspect]
     Active Substance: ETANERCEPT
     Indication: PRODUCT USED FOR UNKNOWN INDICATION
     Route: 058
  14. METHOTREXATE. [Concomitant]
     Active Substance: METHOTREXATE
  15. PREDNISONE. [Concomitant]
     Active Substance: PREDNISONE
  16. SULFASALAZINE. [Concomitant]
     Active Substance: SULFASALAZINE

REACTIONS (7)
  - Headache [Unknown]
  - Nausea [Unknown]
  - Pruritus [Unknown]
  - Drug ineffective [Unknown]
  - Hypersensitivity [Unknown]
  - Off label use [Unknown]
  - Weight decreased [Unknown]
